FAERS Safety Report 15888407 (Version 1)
Quarter: 2019Q1

REPORT INFORMATION
  Report Type: Spontaneous
  Country: CA (occurrence: CA)
  Receive Date: 20190130
  Receipt Date: 20190130
  Transmission Date: 20190417
  Serious: Yes (Hospitalization)
  Sender: FDA-Public Use
  Company Number: CA-TEVA-2019-CA-1005954

PATIENT
  Age: 70 Year
  Sex: Female

DRUGS (1)
  1. TEVA-TOLTERODINE [Suspect]
     Active Substance: TOLTERODINE
     Dosage: 2 MILLIGRAM DAILY;
     Route: 048

REACTIONS (4)
  - Heart rate increased [Recovered/Resolved]
  - Insomnia [Recovered/Resolved]
  - Dyspnoea [Recovered/Resolved]
  - Rhinorrhoea [Recovered/Resolved]
